FAERS Safety Report 8842324 (Version 6)
Quarter: 2015Q2

REPORT INFORMATION
  Report Type: Spontaneous
  Country: US (occurrence: US)
  Receive Date: 20121016
  Receipt Date: 20150629
  Transmission Date: 20150821
  Serious: Yes (Hospitalization, Disabling, Other)
  Sender: FDA-Public Use
  Company Number: US-009507513-1210USA004456

PATIENT
  Sex: Female
  Weight: 74.83 kg

DRUGS (4)
  1. RECLAST [Concomitant]
     Active Substance: ZOLEDRONIC ACID
     Indication: OSTEOPOROSIS
     Dosage: UNK, QD
  2. FOSAMAX [Suspect]
     Active Substance: ALENDRONATE SODIUM
     Indication: OSTEOPOROSIS
     Dosage: 10 MG, QD
     Route: 048
     Dates: start: 20010125
  3. FOSAMAX [Suspect]
     Active Substance: ALENDRONATE SODIUM
     Dosage: UNK
     Route: 048
     Dates: start: 1996, end: 2005
  4. FOSAMAX [Suspect]
     Active Substance: ALENDRONATE SODIUM
     Indication: OSTEOPOROSIS
     Dosage: UNK
     Route: 048
     Dates: start: 200802, end: 2010

REACTIONS (11)
  - Femur fracture [Not Recovered/Not Resolved]
  - Limb asymmetry [Unknown]
  - Low turnover osteopathy [Not Recovered/Not Resolved]
  - Intramedullary rod insertion [Unknown]
  - Dental implantation [Unknown]
  - Arthralgia [Not Recovered/Not Resolved]
  - Haemorrhagic anaemia [Unknown]
  - Osteopenia [Unknown]
  - Periodontal operation [Unknown]
  - Oral surgery [Unknown]
  - Tooth extraction [Unknown]

NARRATIVE: CASE EVENT DATE: 19980617
